FAERS Safety Report 11690733 (Version 2)
Quarter: 2015Q4

REPORT INFORMATION
  Report Type: Spontaneous
  Country: US (occurrence: US)
  Receive Date: 20151102
  Receipt Date: 20151124
  Transmission Date: 20160304
  Serious: No
  Sender: FDA-Public Use
  Company Number: US-ASTRAZENECA-2015SF02672

PATIENT
  Age: 20970 Day
  Sex: Male

DRUGS (1)
  1. PULMICORT FLEXHALER [Suspect]
     Active Substance: BUDESONIDE
     Route: 055
     Dates: start: 20151020

REACTIONS (4)
  - Syncope [Unknown]
  - Drug dose omission [Not Recovered/Not Resolved]
  - Affect lability [Unknown]
  - Device defective [Unknown]

NARRATIVE: CASE EVENT DATE: 20151020
